FAERS Safety Report 11876133 (Version 2)
Quarter: 2016Q1

REPORT INFORMATION
  Report Type: Spontaneous
  Country: FR (occurrence: FR)
  Receive Date: 20151229
  Receipt Date: 20160131
  Transmission Date: 20160526
  Serious: Yes (Other)
  Sender: FDA-Public Use
  Company Number: FR-TEVA-620844ISR

PATIENT
  Age: 19 Year
  Sex: Male

DRUGS (1)
  1. TRAMADOL. [Suspect]
     Active Substance: TRAMADOL
     Dosage: 350 MILLIGRAM DAILY; EXACT FORM: IMMEDIATE RELEASE TABLET. IN THREE INTAKES OF 100 TO 150 MG

REACTIONS (2)
  - Substance abuse [Unknown]
  - Schizoid personality disorder [Unknown]
